FAERS Safety Report 12662478 (Version 1)
Quarter: 2016Q3

REPORT INFORMATION
  Report Type: Spontaneous
  Country: US (occurrence: US)
  Receive Date: 20160817
  Receipt Date: 20160817
  Transmission Date: 20161109
  Serious: No
  Sender: FDA-Public Use
  Company Number: US-AMGEN-USASP2016104098

PATIENT
  Age: 57 Year
  Sex: Female

DRUGS (1)
  1. ENBREL [Suspect]
     Active Substance: ETANERCEPT
     Indication: PSORIATIC ARTHROPATHY
     Dosage: UNK UNK, WEEKLY
     Route: 065
     Dates: start: 2007

REACTIONS (8)
  - Paranasal sinus hypersecretion [Unknown]
  - Fall [Unknown]
  - Surgery [Unknown]
  - Nasal injury [Unknown]
  - Joint stiffness [Unknown]
  - Arthralgia [Unknown]
  - Joint injury [Unknown]
  - Pain [Unknown]

NARRATIVE: CASE EVENT DATE: 2016
